FAERS Safety Report 6939968-8 (Version None)
Quarter: 2010Q3

REPORT INFORMATION
  Report Type: 
  Country: None (occurrence: None)
  Receive Date: 20100825
  Receipt Date: 20100813
  Transmission Date: 20110219
  Serious: Yes (Other)
  Sender: FDA-Public Use
  Company Number: CL-PFIZER INC-2010103951

PATIENT
  Age: 14 Year
  Sex: Male

DRUGS (1)
  1. GENOTONORM [Suspect]

REACTIONS (1)
  - MELANOCYTIC NAEVUS [None]
